FAERS Safety Report 11037990 (Version 2)
Quarter: 2015Q4

REPORT INFORMATION
  Report Type: Spontaneous
  Country: US (occurrence: US)
  Receive Date: 20150416
  Receipt Date: 20151223
  Transmission Date: 20160304
  Serious: Yes (Hospitalization, Other)
  Sender: FDA-Public Use
  Company Number: US-ASTELLAS-2015US011820

PATIENT
  Age: 55 Year
  Sex: Male

DRUGS (3)
  1. PROGRAF [Suspect]
     Active Substance: TACROLIMUS\TACROLIMUS ANHYDROUS
     Dosage: 0.5 G, UNKNOWN FREQ.
     Route: 065
  2. RAPAMUNE [Suspect]
     Active Substance: SIROLIMUS
     Indication: SKIN CANCER
  3. PROGRAF [Suspect]
     Active Substance: TACROLIMUS\TACROLIMUS ANHYDROUS
     Indication: LIVER TRANSPLANT
     Route: 048
     Dates: start: 20060531

REACTIONS (4)
  - Hepatitis C [Unknown]
  - Throat cancer [Unknown]
  - Liver transplant [Unknown]
  - Squamous cell carcinoma of skin [Unknown]

NARRATIVE: CASE EVENT DATE: 20120701
